FAERS Safety Report 22316883 (Version 1)
Quarter: 2023Q2

REPORT INFORMATION
  Report Type: Report from Study
  Country: CA (occurrence: CA)
  Receive Date: 20230513
  Receipt Date: 20230513
  Transmission Date: 20230722
  Serious: Yes (Disabling, Other)
  Sender: FDA-Public Use
  Company Number: CA-TAKEDA-2023TUS045846

PATIENT
  Sex: Female

DRUGS (2)
  1. LISDEXAMFETAMINE DIMESYLATE [Suspect]
     Active Substance: LISDEXAMFETAMINE DIMESYLATE
     Indication: Fatigue
     Dosage: UNK
     Route: 048
  2. MODAFINIL [Suspect]
     Active Substance: MODAFINIL
     Indication: Fatigue
     Dosage: UNK
     Route: 065

REACTIONS (4)
  - Disability [Unknown]
  - Drug ineffective [Unknown]
  - Off label use [Unknown]
  - Insurance issue [Unknown]
